FAERS Safety Report 9699179 (Version 1)
Quarter: 2013Q4

REPORT INFORMATION
  Report Type: Spontaneous
  Country: US (occurrence: US)
  Receive Date: 20131120
  Receipt Date: 20131120
  Transmission Date: 20140711
  Serious: No
  Sender: FDA-Public Use
  Company Number: US-GILEAD-2008-0014868

PATIENT
  Sex: Female

DRUGS (8)
  1. LETAIRIS [Suspect]
     Indication: PULMONARY ARTERIAL HYPERTENSION
     Route: 048
     Dates: start: 20070911, end: 20071129
  2. OXYGEN [Concomitant]
  3. PREDNISONE [Concomitant]
  4. ADVAIR [Concomitant]
  5. CELEXA [Concomitant]
  6. NEXIUM [Concomitant]
  7. RHINOCORT AQ [Concomitant]
  8. BONIVA [Concomitant]

REACTIONS (1)
  - Hypoxia [None]
